FAERS Safety Report 15993722 (Version 1)
Quarter: 2019Q1

REPORT INFORMATION
  Report Type: Spontaneous
  Country: JP (occurrence: JP)
  Receive Date: 20190222
  Receipt Date: 20190222
  Transmission Date: 20190418
  Serious: Yes (Hospitalization, Other)
  Sender: FDA-Public Use
  Company Number: JP-SAKK-BA201801774001

PATIENT
  Sex: Female
  Weight: 48 kg

DRUGS (4)
  1. HERCEPTIN [Concomitant]
     Active Substance: TRASTUZUMAB
     Indication: PRODUCT USED FOR UNKNOWN INDICATION
     Dosage: 360 MG, QD
     Route: 041
     Dates: start: 20180220
  2. TAXOTERE [Suspect]
     Active Substance: DOCETAXEL
     Indication: PRODUCT USED FOR UNKNOWN INDICATION
     Dosage: 100 MG/21 DAYS
     Route: 041
     Dates: start: 20180220, end: 20180220
  3. PERJETA [Suspect]
     Active Substance: PERTUZUMAB
     Indication: PRODUCT USED FOR UNKNOWN INDICATION
     Dosage: 840 MG, QD
     Route: 041
     Dates: start: 20180220
  4. ORGADRONE S [Concomitant]
     Indication: PROPHYLAXIS
     Dosage: DAILY DOSE: 3.8 MG, EVERY ADMINISTRATION OF COMPANY SUSPECTED DRUG
     Route: 065

REACTIONS (10)
  - Skin disorder [Unknown]
  - Pyrexia [Recovered/Resolved]
  - Upper respiratory tract inflammation [Recovered/Resolved]
  - Urticaria [Unknown]
  - Pruritus [Unknown]
  - Pharyngitis [Recovered/Resolved]
  - Stomatitis [Recovered/Resolved]
  - Drug eruption [Recovered/Resolved]
  - Skin exfoliation [Unknown]
  - Febrile neutropenia [Recovered/Resolved]

NARRATIVE: CASE EVENT DATE: 20180226
